FAERS Safety Report 12241821 (Version 1)
Quarter: 2016Q2

REPORT INFORMATION
  Report Type: Spontaneous
  Country: BR (occurrence: BR)
  Receive Date: 20160406
  Receipt Date: 20160406
  Transmission Date: 20160815
  Serious: Yes (Other)
  Sender: FDA-Public Use
  Company Number: BR-PFIZER INC-2016190664

PATIENT
  Sex: Male

DRUGS (2)
  1. XALATAN [Suspect]
     Active Substance: LATANOPROST
     Indication: BLINDNESS
  2. XALATAN [Suspect]
     Active Substance: LATANOPROST
     Indication: EYE SWELLING
     Dosage: 1 DROP IN THE LEFT EYE AT NIGHT
     Route: 047
     Dates: start: 2014

REACTIONS (3)
  - Malaise [Not Recovered/Not Resolved]
  - Product use issue [Unknown]
  - Diabetes mellitus [Unknown]
